FAERS Safety Report 14948233 (Version 1)
Quarter: 2018Q2

REPORT INFORMATION
  Report Type: Spontaneous
  Country: US (occurrence: US)
  Receive Date: 20180529
  Receipt Date: 20180529
  Transmission Date: 20180711
  Serious: No
  Sender: FDA-Public Use
  Company Number: US-PFIZER INC-2018218896

PATIENT
  Age: 59 Year
  Sex: Male
  Weight: 124.7 kg

DRUGS (1)
  1. LYRICA [Suspect]
     Active Substance: PREGABALIN
     Indication: DIABETIC NEUROPATHY
     Dosage: 200 MG, 2X/DAY(50MG, TAKES 4 CAPSULES BY MOUTH TWICE DAILY)
     Route: 048
     Dates: start: 2014

REACTIONS (3)
  - Product packaging issue [Unknown]
  - Overdose [Unknown]
  - Product package associated injury [Unknown]

NARRATIVE: CASE EVENT DATE: 2014
